FAERS Safety Report 7668496-X (Version None)
Quarter: 2011Q3

REPORT INFORMATION
  Report Type: 
  Country: None (occurrence: None)
  Receive Date: 20110808
  Receipt Date: 20110804
  Transmission Date: 20111222
  Serious: Yes (Life-Threatening, Hospitalization, Disabling)
  Sender: FDA-Public Use
  Company Number: US-B.I. PHARMACEUTICALS,INC./RIDGEFIELD-2011-BP-12533BP

PATIENT
  Age: 67 Year
  Sex: Male

DRUGS (4)
  1. PRADAXA [Suspect]
     Dosage: 300 MG
     Dates: end: 20110505
  2. SIMVASTATIN [Concomitant]
     Dosage: 20 MG
  3. DIGOXIN [Concomitant]
     Dosage: 0.25 MG
  4. METOPROLOL TARTRATE [Concomitant]
     Dosage: 25 MG

REACTIONS (1)
  - HAEMORRHAGE INTRACRANIAL [None]
